FAERS Safety Report 8346006-1 (Version None)
Quarter: 2012Q2

REPORT INFORMATION
  Report Type: 
  Country: None (occurrence: None)
  Receive Date: 20120509
  Receipt Date: 20120504
  Transmission Date: 20120825
  Serious: No
  Sender: FDA-Public Use
  Company Number: US-PFIZER INC-2012109879

PATIENT
  Sex: Male
  Weight: 98.866 kg

DRUGS (1)
  1. PANTOPRAZOLE [Suspect]

REACTIONS (1)
  - DRUG INEFFECTIVE [None]
